FAERS Safety Report 23516801 (Version 1)
Quarter: 2024Q1

REPORT INFORMATION
  Report Type: Spontaneous
  Country: US (occurrence: US)
  Receive Date: 20240213
  Receipt Date: 20240213
  Transmission Date: 20240409
  Serious: Yes (Other)
  Sender: FDA-Public Use
  Company Number: US-GLENMARK PHARMACEUTICALS-2024GMK088748

PATIENT

DRUGS (3)
  1. INDOMETHACIN [Interacting]
     Active Substance: INDOMETHACIN
     Indication: Pain
     Dosage: UNK
     Route: 065
  2. NAPROXEN [Interacting]
     Active Substance: NAPROXEN
     Indication: Product used for unknown indication
     Dosage: UNK
     Route: 065
  3. COLCHICINE [Interacting]
     Active Substance: COLCHICINE
     Indication: Pericarditis
     Dosage: UNK, AM (EVERY MORNING FOR A MONTH WHILE WORKING).
     Route: 065
     Dates: start: 2015

REACTIONS (7)
  - Dysstasia [Unknown]
  - Drug interaction [Unknown]
  - Loss of personal independence in daily activities [Unknown]
  - Illness [Unknown]
  - Product use in unapproved indication [Unknown]
  - Recalled product administered [Unknown]
  - Impaired work ability [Unknown]
